FAERS Safety Report 7224425-4 (Version None)
Quarter: 2011Q1

REPORT INFORMATION
  Report Type: 
  Country: None (occurrence: None)
  Receive Date: 20110113
  Receipt Date: 20101105
  Transmission Date: 20110831
  Serious: No
  Sender: FDA-Public Use
  Company Number: US-BAYER-201023596BCC

PATIENT
  Sex: Male
  Weight: 80.455 kg

DRUGS (3)
  1. ALEVE [Suspect]
     Indication: MUSCULOSKELETAL PAIN
     Dosage: 220 MG, ONCE
     Route: 048
     Dates: start: 20101105
  2. SIMVASTATIN [Concomitant]
  3. PROPRANOLOL [Concomitant]
     Dosage: 40 MG, UNK

REACTIONS (1)
  - EPISTAXIS [None]
